FAERS Safety Report 16492015 (Version 3)
Quarter: 2019Q4

REPORT INFORMATION
  Report Type: Spontaneous
  Country: US (occurrence: US)
  Receive Date: 20190628
  Receipt Date: 20191104
  Transmission Date: 20200122
  Serious: Yes (Other)
  Sender: FDA-Public Use
  Company Number: US-GLAXOSMITHKLINE-US2019GSK116908

PATIENT
  Sex: Female

DRUGS (4)
  1. PANTOPRAZOLE [Suspect]
     Active Substance: PANTOPRAZOLE
     Indication: PRODUCT USED FOR UNKNOWN INDICATION
     Dosage: UNK
     Route: 065
  2. PREVACID [Suspect]
     Active Substance: LANSOPRAZOLE
     Indication: PRODUCT USED FOR UNKNOWN INDICATION
     Dosage: UNK
     Route: 065
  3. PANTOPRAZOLE [Suspect]
     Active Substance: PANTOPRAZOLE
     Indication: PRODUCT USED FOR UNKNOWN INDICATION
     Dosage: 40 MG, BID
     Route: 048
  4. ESOMEPRAZOLE. [Suspect]
     Active Substance: ESOMEPRAZOLE MAGNESIUM
     Indication: PRODUCT USED FOR UNKNOWN INDICATION
     Dosage: 40 MG, QD
     Route: 048

REACTIONS (19)
  - Renal impairment [Unknown]
  - Lithotripsy [Unknown]
  - Renal tubular acidosis [Unknown]
  - Renal stone removal [Unknown]
  - Renal failure [Unknown]
  - Chronic kidney disease [Unknown]
  - Stag horn calculus [Unknown]
  - Hydronephrosis [Unknown]
  - Ureterolithiasis [Unknown]
  - Pelvic kidney [Unknown]
  - Nephrolithiasis [Unknown]
  - Acute kidney injury [Unknown]
  - Renal atrophy [Unknown]
  - Urinary tract obstruction [Unknown]
  - Nephrostomy [Unknown]
  - Pyelonephritis [Unknown]
  - Nephrocalcinosis [Unknown]
  - Haematuria [Unknown]
  - Calculus urinary [Unknown]
